FAERS Safety Report 6568878-3 (Version None)
Quarter: 2010Q1

REPORT INFORMATION
  Report Type: 
  Country: None (occurrence: None)
  Receive Date: 20100128
  Receipt Date: 20100116
  Transmission Date: 20100710
  Serious: Yes (Other)
  Sender: FDA-Public Use
  Company Number: 2010AP000114

PATIENT
  Age: 59 Year
  Sex: Male

DRUGS (8)
  1. FLUOXETINE HYDROCHLORIDE [Suspect]
     Indication: DEPRESSION
     Dosage: 40 MG;QD;
  2. CLOPIDOGREL [Concomitant]
  3. ATENOLOL [Concomitant]
  4. EZETIMIBE [Concomitant]
  5. SIMVASTATIN [Concomitant]
  6. LISINOPRIL [Concomitant]
  7. ACETYLSALICYLIC ACID [Concomitant]
  8. MULTI-VITAMINS [Concomitant]

REACTIONS (4)
  - ABNORMAL BEHAVIOUR [None]
  - RAPID EYE MOVEMENTS SLEEP ABNORMAL [None]
  - SLEEP APNOEA SYNDROME [None]
  - SLEEP TALKING [None]
